FAERS Safety Report 6851777-7 (Version None)
Quarter: 2010Q3

REPORT INFORMATION
  Report Type: 
  Country: None (occurrence: None)
  Receive Date: 20100717
  Receipt Date: 20071028
  Transmission Date: 20110219
  Serious: No
  Sender: FDA-Public Use
  Company Number: US-PFIZER INC-2007092611

PATIENT
  Age: 53 Year
  Sex: Male
  Weight: 140.6 kg

DRUGS (1)
  1. CHANTIX [Suspect]
     Indication: SMOKING CESSATION THERAPY
     Dosage: INTERVAL: EVERY DAY
     Dates: start: 20071001

REACTIONS (3)
  - INITIAL INSOMNIA [None]
  - INSOMNIA [None]
  - POOR QUALITY SLEEP [None]
